FAERS Safety Report 9177926 (Version 2)
Quarter: 2013Q2

REPORT INFORMATION
  Report Type: Spontaneous
  Country: IT (occurrence: IT)
  Receive Date: 20130321
  Receipt Date: 20130402
  Transmission Date: 20140414
  Serious: Yes (Hospitalization, Other)
  Sender: FDA-Public Use
  Company Number: IT-PFIZER INC-2013091511

PATIENT
  Age: 58 Year
  Sex: Female

DRUGS (4)
  1. XANAX [Suspect]
     Indication: BIPOLAR DISORDER
     Dosage: 15 MG, TOTAL
     Route: 048
     Dates: start: 20121211, end: 20121211
  2. CITALOPRAM [Suspect]
     Indication: BIPOLAR DISORDER
     Dosage: 300 MG, TOTAL
     Route: 048
     Dates: start: 20121211, end: 20121211
  3. SEROQUEL [Suspect]
     Indication: BIPOLAR DISORDER
     Dosage: 1500 MG, TOTAL
     Route: 048
     Dates: start: 20121211, end: 20121211
  4. SAMYR [Suspect]
     Indication: BIPOLAR DISORDER
     Dosage: 4000 MG, TOTAL
     Route: 048
     Dates: start: 20121211, end: 20121211

REACTIONS (11)
  - Intentional overdose [Recovering/Resolving]
  - Loss of consciousness [Recovering/Resolving]
  - Suicide attempt [Recovering/Resolving]
  - Amnesia [Recovering/Resolving]
  - Dysarthria [Recovering/Resolving]
  - Logorrhoea [Recovering/Resolving]
  - Agitation [Recovering/Resolving]
  - Somnolence [Recovering/Resolving]
  - Somnolence [Recovering/Resolving]
  - Intentional self-injury [Recovering/Resolving]
  - Drug abuse [Recovering/Resolving]
